FAERS Safety Report 10389290 (Version 2)
Quarter: 2014Q4

REPORT INFORMATION
  Report Type: Spontaneous
  Country: CH (occurrence: CH)
  Receive Date: 20140818
  Receipt Date: 20141014
  Transmission Date: 20150528
  Serious: Yes (Other)
  Sender: FDA-Public Use
  Company Number: CH-ABBVIE-14P-151-1270999-00

PATIENT
  Age: 41 Year
  Sex: Male

DRUGS (2)
  1. HUMIRA [Suspect]
     Active Substance: ADALIMUMAB
     Indication: ANKYLOSING SPONDYLITIS
  2. HUMIRA [Suspect]
     Active Substance: ADALIMUMAB
     Indication: CROHN^S DISEASE
     Route: 065
     Dates: start: 201302

REACTIONS (8)
  - Pyoderma gangrenosum [Not Recovered/Not Resolved]
  - White blood cell count increased [Recovered/Resolved]
  - Urinary sediment present [Unknown]
  - Blood immunoglobulin G decreased [Unknown]
  - Aspartate aminotransferase increased [Recovered/Resolved]
  - Blood creatinine increased [Recovered/Resolved]
  - Alanine aminotransferase increased [Unknown]
  - C-reactive protein increased [Recovered/Resolved]

NARRATIVE: CASE EVENT DATE: 20140716
